FAERS Safety Report 9742613 (Version 1)
Quarter: 2013Q4

REPORT INFORMATION
  Report Type: Spontaneous
  Country: US (occurrence: US)
  Receive Date: 20131210
  Receipt Date: 20131210
  Transmission Date: 20140711
  Serious: Yes (Other)
  Sender: FDA-Public Use
  Company Number: US-GILEAD-2009-0024736

PATIENT
  Sex: Female
  Weight: 101.15 kg

DRUGS (19)
  1. LETAIRIS [Suspect]
     Indication: PULMONARY ARTERIAL HYPERTENSION
     Route: 048
     Dates: start: 20090917
  2. OXYGEN [Concomitant]
  3. REVATIO [Concomitant]
  4. COUMADIN [Concomitant]
  5. LASIX [Concomitant]
  6. ALDACTONE [Concomitant]
  7. DIOVAN HCT [Concomitant]
  8. HYDRALAZINE [Concomitant]
  9. COREG [Concomitant]
  10. ADVAIR [Concomitant]
  11. PROVENTIL [Concomitant]
  12. DUONEB [Concomitant]
  13. LANTUS [Concomitant]
  14. GLIPIZIDE [Concomitant]
  15. TUMS CALCIUM [Concomitant]
  16. KLOR-CON [Concomitant]
  17. A-Z MULTIVITAMIN [Concomitant]
  18. SALINE NASAL SPRAY [Concomitant]
  19. REFRESH [Concomitant]

REACTIONS (4)
  - Swelling [Unknown]
  - Weight increased [Unknown]
  - Palpitations [Unknown]
  - Dyspnoea [Unknown]
